FAERS Safety Report 23157404 (Version 2)
Quarter: 2023Q4

REPORT INFORMATION
  Report Type: Spontaneous
  Country: AU (occurrence: AU)
  Receive Date: 20231108
  Receipt Date: 20231116
  Transmission Date: 20240110
  Serious: Yes (Other)
  Sender: FDA-Public Use
  Company Number: AU-BEH-2023165023

PATIENT
  Age: 74 Year
  Sex: Female
  Weight: 88.2 kg

DRUGS (26)
  1. ALBUREX [Suspect]
     Active Substance: ALBUMIN HUMAN
     Indication: Plasmapheresis
     Dosage: 1000 MILLILITER
     Route: 042
     Dates: start: 20231026, end: 20231026
  2. ALBUREX [Suspect]
     Active Substance: ALBUMIN HUMAN
     Dosage: 1000 MILLILITER
     Route: 042
     Dates: start: 20231026, end: 20231026
  3. ALBUREX [Suspect]
     Active Substance: ALBUMIN HUMAN
     Dosage: 3 LITER, QW (FOR 3 WEEKS AND 1 WEEK OFF)
     Route: 042
  4. FRESH FROZEN PLASMA [Concomitant]
     Active Substance: HUMAN PLASMA
     Dosage: 0.5 LITER, FOR 3 WEEKS AND 1 WEEK OFF
  5. FRESH FROZEN PLASMA [Concomitant]
     Active Substance: HUMAN PLASMA
     Dosage: 0.5 LITER
     Dates: start: 20231026
  6. FERRITIN [Concomitant]
     Active Substance: FERRITIN
     Indication: Iron deficiency
  7. FERRITIN [Concomitant]
     Active Substance: FERRITIN
     Indication: Iron deficiency
  8. TACROLIMUS [Concomitant]
     Active Substance: TACROLIMUS
     Indication: Microscopic polyangiitis
     Dosage: UNK, BID
  9. MYCOPHENOLATE MOFETIL [Concomitant]
     Active Substance: MYCOPHENOLATE MOFETIL
     Indication: Microscopic polyangiitis
     Dosage: 500 MILLIGRAM, BID
  10. MYCOPHENOLATE MOFETIL [Concomitant]
     Active Substance: MYCOPHENOLATE MOFETIL
     Indication: Focal segmental glomerulosclerosis
  11. PREDNISOLONE [Concomitant]
     Active Substance: PREDNISOLONE
     Dosage: 5 MILLIGRAM, QD
  12. BACTRIM DS [Concomitant]
     Active Substance: SULFAMETHOXAZOLE\TRIMETHOPRIM
     Dosage: 1 DOSAGE FORM, TIW, O  CONTINUE WHILE ON PLASMA EXCHANGE
  13. PANTOPRAZOLE [Concomitant]
     Active Substance: PANTOPRAZOLE
     Indication: Gastrooesophageal reflux disease
     Dosage: 40 MILLIGRAM, NIGHT
  14. ATENOLOL [Concomitant]
     Active Substance: ATENOLOL
     Dosage: 25 MILLIGRAM, QD
  15. CANDESARTAN [Concomitant]
     Active Substance: CANDESARTAN
     Dosage: 32 MILLIGRAM, NIGHT
  16. VITAMIN C [Concomitant]
     Active Substance: ASCORBIC ACID
  17. VITAMIN D NOS [Concomitant]
     Active Substance: VITAMIN D NOS
  18. VITAMIN B [Concomitant]
     Active Substance: VITAMIN B
  19. ROSUVASTATIN [Concomitant]
     Active Substance: ROSUVASTATIN
     Dosage: 20 MILLIGRAM, NIGHT
  20. LERCANIDIPINE [Concomitant]
     Active Substance: LERCANIDIPINE
     Dosage: 10 MILLIGRAM, MORNING
  21. THYROXINE [Concomitant]
     Active Substance: LEVOTHYROXINE
     Dosage: 100 MICROGRAM, QD
  22. THYROXINE [Concomitant]
     Active Substance: LEVOTHYROXINE
     Dosage: UNK (REDUCED)
     Dates: start: 20171214
  23. MAGNESIUM ASPARTATE [Concomitant]
     Active Substance: MAGNESIUM ASPARTATE
     Dosage: 1 DOSAGE FORM, MORNING
  24. DAPAGLIFLOZIN [Concomitant]
     Active Substance: DAPAGLIFLOZIN
     Dosage: 10 MILLIGRAM, QD
  25. MIRCERA [Concomitant]
     Active Substance: METHOXY POLYETHYLENE GLYCOL-EPOETIN BETA
     Dosage: 50 MICROGRAM, 8/52 VIA PLEX
  26. SARS-COV-2 VACCINE [Concomitant]
     Dosage: 5 DOSAGE FORM

REACTIONS (8)
  - Allergic transfusion reaction [Recovered/Resolved]
  - Pruritus [Recovered/Resolved]
  - Rash [Recovered/Resolved]
  - Allergic transfusion reaction [Recovered/Resolved]
  - Pruritus [Recovered/Resolved]
  - Rash [Recovered/Resolved]
  - No adverse event [Unknown]
  - Incorrect drug administration rate [Unknown]

NARRATIVE: CASE EVENT DATE: 20231026
